FAERS Safety Report 10176228 (Version 2)
Quarter: 2014Q2

REPORT INFORMATION
  Report Type: Spontaneous
  Country: BR (occurrence: BR)
  Receive Date: 20140516
  Receipt Date: 20140528
  Transmission Date: 20141212
  Serious: Yes (Other)
  Sender: FDA-Public Use
  Company Number: BR-009507513-1405BRA005734

PATIENT
  Sex: Female
  Weight: 42 kg

DRUGS (3)
  1. MERCILON [Suspect]
     Indication: CONTRACEPTION
     Dosage: 1 DF, QD
     Route: 048
     Dates: start: 1994, end: 1995
  2. MERCILON [Suspect]
     Dosage: 1 DF, QD
     Route: 048
     Dates: start: 1996
  3. SYNTHROID [Concomitant]
     Indication: THYROID DISORDER
     Dosage: 100 MICROGRAM, QD
     Route: 048
     Dates: start: 1984

REACTIONS (5)
  - Caesarean section [Recovered/Resolved]
  - Labour complication [Recovered/Resolved]
  - Traumatic delivery [Unknown]
  - Pharyngeal inflammation [Recovering/Resolving]
  - Maternal exposure before pregnancy [Unknown]
